FAERS Safety Report 12996274 (Version 2)
Quarter: 2017Q3

REPORT INFORMATION
  Report Type: Report from Study
  Country: US (occurrence: US)
  Receive Date: 20161203
  Receipt Date: 20170901
  Transmission Date: 20171127
  Serious: No
  Sender: FDA-Public Use
  Company Number: PHEH2016US031425

PATIENT
  Age: 86 Year
  Sex: Female

DRUGS (1)
  1. PROMACTA [Suspect]
     Active Substance: ELTROMBOPAG OLAMINE
     Indication: PRODUCT USED FOR UNKNOWN INDICATION
     Route: 065

REACTIONS (2)
  - Platelet count decreased [Unknown]
  - Muscle spasms [Unknown]

NARRATIVE: CASE EVENT DATE: 20161129
